FAERS Safety Report 16781779 (Version 2)
Quarter: 2020Q2

REPORT INFORMATION
  Report Type: Spontaneous
  Country: US (occurrence: US)
  Receive Date: 20190906
  Receipt Date: 20200522
  Transmission Date: 20200713
  Serious: Yes (Disabling, Other)
  Sender: FDA-Public Use
  Company Number: US-ASTRAZENECA-2019SF26354

PATIENT
  Age: 55 Year
  Sex: Female
  Weight: 61.7 kg

DRUGS (37)
  1. NEXIUM [Suspect]
     Active Substance: ESOMEPRAZOLE MAGNESIUM
     Indication: GASTROOESOPHAGEAL REFLUX DISEASE
     Route: 048
     Dates: start: 200808, end: 201001
  2. AMITRIPTYLINE [Concomitant]
     Active Substance: AMITRIPTYLINE
     Indication: NEURALGIA
     Dates: start: 200808, end: 200901
  3. HCTZ [Concomitant]
     Active Substance: HYDROCHLOROTHIAZIDE
     Indication: BLOOD PRESSURE ABNORMAL
     Dates: start: 200809, end: 201609
  4. LANTUS [Concomitant]
     Active Substance: INSULIN GLARGINE
     Indication: DIABETES MELLITUS
     Dates: start: 200911, end: 201609
  5. FELODIPINE. [Concomitant]
     Active Substance: FELODIPINE
  6. METFORMIN [Concomitant]
     Active Substance: METFORMIN HYDROCHLORIDE
     Indication: DIABETES MELLITUS
     Dates: start: 200808, end: 201609
  7. SEROQUEL [Concomitant]
     Active Substance: QUETIAPINE FUMARATE
  8. DULCOLAX NOS [Concomitant]
     Active Substance: BISACODYL OR DOCUSATE SODIUM
  9. GABAPENTIN. [Concomitant]
     Active Substance: GABAPENTIN
  10. AMBIEN [Concomitant]
     Active Substance: ZOLPIDEM TARTRATE
     Indication: SLEEP DISORDER
     Dates: start: 200803, end: 201609
  11. ASPIRIN. [Concomitant]
     Active Substance: ASPIRIN
     Indication: CARDIAC DISORDER
     Dates: start: 2020
  12. ROBITUSSIN (GUAIFENESIN) [Concomitant]
     Active Substance: GUAIFENESIN
  13. LYRICA [Concomitant]
     Active Substance: PREGABALIN
  14. BETAMETHASONE. [Concomitant]
     Active Substance: BETAMETHASONE
  15. LIDODERM [Concomitant]
     Active Substance: LIDOCAINE
  16. CELEBREX [Concomitant]
     Active Substance: CELECOXIB
  17. NEXIUM [Suspect]
     Active Substance: ESOMEPRAZOLE MAGNESIUM
     Indication: GASTROOESOPHAGEAL REFLUX DISEASE
     Route: 048
     Dates: start: 2008, end: 2016
  18. LISINOPRIL. [Concomitant]
     Active Substance: LISINOPRIL
     Indication: BLOOD PRESSURE ABNORMAL
     Dates: start: 200809, end: 201206
  19. METOPROLOL. [Concomitant]
     Active Substance: METOPROLOL
     Indication: BLOOD PRESSURE ABNORMAL
     Dates: start: 200809, end: 201609
  20. GLIMEPIRIDE. [Concomitant]
     Active Substance: GLIMEPIRIDE
     Indication: DIABETES MELLITUS
     Dates: start: 200809, end: 200904
  21. NAPROXEN. [Concomitant]
     Active Substance: NAPROXEN
  22. RANITIDINE. [Concomitant]
     Active Substance: RANITIDINE
  23. FLUCONAZOLE. [Concomitant]
     Active Substance: FLUCONAZOLE
  24. AMLODIPINE [Concomitant]
     Active Substance: AMLODIPINE BESYLATE
     Indication: BLOOD PRESSURE ABNORMAL
     Dates: start: 200809, end: 201206
  25. XALATAN [Concomitant]
     Active Substance: LATANOPROST
  26. CIPROFLOXACIN. [Concomitant]
     Active Substance: CIPROFLOXACIN
  27. NYSTATIN. [Concomitant]
     Active Substance: NYSTATIN
  28. LEXAPRO [Concomitant]
     Active Substance: ESCITALOPRAM OXALATE
  29. TERCONAZOLE. [Concomitant]
     Active Substance: TERCONAZOLE
  30. LATANOPROST. [Concomitant]
     Active Substance: LATANOPROST
  31. OMEPRAZOLE. [Suspect]
     Active Substance: OMEPRAZOLE
     Indication: GASTROOESOPHAGEAL REFLUX DISEASE
     Dosage: GENERIC, 20-40 MG DAILY
     Route: 065
     Dates: start: 201004, end: 201611
  32. CHANTIX [Concomitant]
     Active Substance: VARENICLINE TARTRATE
     Indication: SMOKING CESSATION THERAPY
     Dates: start: 200811, end: 201308
  33. FERROUS SULFATE. [Concomitant]
     Active Substance: FERROUS SULFATE
     Indication: SUPPLEMENTATION THERAPY
     Dates: start: 201002, end: 201610
  34. CLARITHROMYCIN. [Concomitant]
     Active Substance: CLARITHROMYCIN
  35. TEMAZEPAM. [Concomitant]
     Active Substance: TEMAZEPAM
  36. JANUVIA [Concomitant]
     Active Substance: SITAGLIPTIN PHOSPHATE
  37. DIOVAN [Concomitant]
     Active Substance: VALSARTAN

REACTIONS (1)
  - Chronic kidney disease [Not Recovered/Not Resolved]

NARRATIVE: CASE EVENT DATE: 2013
